FAERS Safety Report 14678604 (Version 2)
Quarter: 2018Q4

REPORT INFORMATION
  Report Type: Spontaneous
  Country: FR (occurrence: FR)
  Receive Date: 20180326
  Receipt Date: 20181025
  Transmission Date: 20190204
  Serious: Yes (Other)
  Sender: FDA-Public Use
  Company Number: FR-MERCK KGAA-2044491

PATIENT
  Age: 91 Year
  Sex: Female

DRUGS (1)
  1. EUTHYROX [Suspect]
     Active Substance: LEVOTHYROXINE SODIUM
     Indication: HYPOTHYROIDISM
     Dates: start: 20170401

REACTIONS (18)
  - Blood thyroid stimulating hormone increased [None]
  - Fatigue [None]
  - Insomnia [Recovered/Resolved]
  - Blood calcium increased [None]
  - Anxiety [Recovered/Resolved]
  - Asthenia [Recovered/Resolved]
  - Vertigo [Recovered/Resolved]
  - Migraine [Recovering/Resolving]
  - Myalgia [Recovering/Resolving]
  - Herpes zoster [Recovered/Resolved]
  - Loss of personal independence in daily activities [None]
  - Dizziness [Recovering/Resolving]
  - Depression [None]
  - Blood thyroid stimulating hormone decreased [None]
  - Muscular weakness [None]
  - Fall [None]
  - Hyperthyroidism [Recovering/Resolving]
  - Hypoalbuminaemia [None]

NARRATIVE: CASE EVENT DATE: 201704
